FAERS Safety Report 23198744 (Version 1)
Quarter: 2023Q4

REPORT INFORMATION
  Report Type: Spontaneous
  Country: IT (occurrence: IT)
  Receive Date: 20231117
  Receipt Date: 20231117
  Transmission Date: 20240110
  Serious: Yes (Other)
  Sender: FDA-Public Use
  Company Number: None

PATIENT
  Age: 45 Year
  Sex: Male
  Weight: 85 kg

DRUGS (1)
  1. AZITHROMYCIN [Suspect]
     Active Substance: AZITHROMYCIN
     Indication: Urinary tract infection
     Dosage: 500 MG, DAILY
     Route: 048
     Dates: start: 20230901, end: 20230904

REACTIONS (2)
  - Bradyarrhythmia [Not Recovered/Not Resolved]
  - Off label use [Unknown]

NARRATIVE: CASE EVENT DATE: 20230901
